FAERS Safety Report 21308844 (Version 2)
Quarter: 2022Q3

REPORT INFORMATION
  Report Type: Report from Study
  Country: US (occurrence: US)
  Receive Date: 20220908
  Receipt Date: 20220909
  Transmission Date: 20221027
  Serious: Yes (Other)
  Sender: FDA-Public Use
  Company Number: US-PFIZER INC-202201139691

PATIENT

DRUGS (2)
  1. GEMCITABINE HYDROCHLORIDE [Suspect]
     Active Substance: GEMCITABINE HYDROCHLORIDE
     Indication: Osteosarcoma recurrent
     Dosage: 1000 MG/M2, CYCLIC: WEEKLY X 3 IN 4-WEEK CYCLES
  2. PACLITAXEL [Suspect]
     Active Substance: PACLITAXEL
     Indication: Osteosarcoma recurrent
     Dosage: 125 MG/M2, CYCLIC: WEEKLY X 3 IN 4-WEEK CYCLES

REACTIONS (1)
  - Neuropathy peripheral [Unknown]
